FAERS Safety Report 7631161 (Version 6)
Quarter: 2016Q1

REPORT INFORMATION
  Report Type: Spontaneous
  Country: JP (occurrence: JP)
  Receive Date: 20101015
  Receipt Date: 20160115
  Transmission Date: 20160526
  Serious: Yes (Hospitalization, Other)
  Sender: FDA-Public Use
  Company Number: JP-JNJFOC-20101002738

PATIENT
  Age: 16 Year
  Sex: Female
  Weight: 61 kg

DRUGS (17)
  1. REMICADE [Suspect]
     Active Substance: INFLIXIMAB
     Indication: COLITIS ULCERATIVE
     Dosage: 8 DOSES
     Route: 042
     Dates: start: 20100420, end: 20100420
  2. REMICADE [Suspect]
     Active Substance: INFLIXIMAB
     Indication: COLITIS ULCERATIVE
     Route: 042
     Dates: start: 20101005, end: 20101005
  3. REMICADE [Suspect]
     Active Substance: INFLIXIMAB
     Indication: CROHN^S DISEASE
     Route: 042
     Dates: start: 20101005, end: 20101005
  4. REMICADE [Suspect]
     Active Substance: INFLIXIMAB
     Indication: CROHN^S DISEASE
     Dosage: 8 DOSES
     Route: 042
     Dates: start: 20100203, end: 20100203
  5. REMICADE [Suspect]
     Active Substance: INFLIXIMAB
     Indication: COLITIS ULCERATIVE
     Dosage: TOTAL OF 13 DOSES RECEIVED
     Route: 042
     Dates: start: 20080605, end: 20080605
  6. ALLEGRA [Concomitant]
     Active Substance: FEXOFENADINE HYDROCHLORIDE
     Indication: SEASONAL ALLERGY
     Route: 048
     Dates: start: 20100204, end: 20100510
  7. REMICADE [Suspect]
     Active Substance: INFLIXIMAB
     Indication: CROHN^S DISEASE
     Dosage: 2 DOSES
     Route: 042
  8. BIO-THREE [Concomitant]
     Active Substance: HERBALS
     Indication: CROHN^S DISEASE
     Route: 048
  9. REMICADE [Suspect]
     Active Substance: INFLIXIMAB
     Indication: COLITIS ULCERATIVE
     Dosage: 2 DOSES
     Route: 042
  10. REMICADE [Suspect]
     Active Substance: INFLIXIMAB
     Indication: CROHN^S DISEASE
     Dosage: 8 DOSES
     Route: 042
     Dates: start: 20100420, end: 20100420
  11. REMICADE [Suspect]
     Active Substance: INFLIXIMAB
     Indication: COLITIS ULCERATIVE
     Dosage: 2 DOSES
     Route: 042
     Dates: start: 20080911, end: 20080911
  12. REMICADE [Suspect]
     Active Substance: INFLIXIMAB
     Indication: COLITIS ULCERATIVE
     Dosage: 8 DOSES
     Route: 042
     Dates: start: 20100203, end: 20100203
  13. SELBEX [Concomitant]
     Active Substance: TEPRENONE
     Indication: CROHN^S DISEASE
     Route: 048
     Dates: start: 20100326, end: 20100510
  14. REMICADE [Suspect]
     Active Substance: INFLIXIMAB
     Indication: CROHN^S DISEASE
     Dosage: TOTAL OF 13 DOSES RECEIVED
     Route: 042
     Dates: start: 20080605, end: 20080605
  15. REMICADE [Suspect]
     Active Substance: INFLIXIMAB
     Indication: CROHN^S DISEASE
     Dosage: 2 DOSES
     Route: 042
     Dates: start: 20080911, end: 20080911
  16. MAGLAX [Concomitant]
     Active Substance: MAGNESIUM OXIDE
     Indication: CONSTIPATION
     Route: 048
     Dates: start: 20100304
  17. PENTASA [Concomitant]
     Active Substance: MESALAMINE
     Indication: CROHN^S DISEASE
     Route: 048

REACTIONS (1)
  - Acute focal bacterial nephritis [Recovering/Resolving]

NARRATIVE: CASE EVENT DATE: 20100401
